FAERS Safety Report 23151612 (Version 2)
Quarter: 2025Q3

REPORT INFORMATION
  Report Type: Report from Study
  Country: GB (occurrence: GB)
  Receive Date: 20231107
  Receipt Date: 20250925
  Transmission Date: 20251021
  Serious: Yes (Other)
  Sender: ROCHE
  Company Number: GB-ROCHE-3133048

PATIENT
  Age: 52 Year
  Sex: Female

DRUGS (1)
  1. EVRYSDI [Suspect]
     Active Substance: RISDIPLAM
     Indication: Product used for unknown indication
     Route: 065
     Dates: start: 20220420

REACTIONS (5)
  - Product dose omission issue [Unknown]
  - Product quality issue [Unknown]
  - Lower limb fracture [Unknown]
  - Fall [Unknown]
  - Product storage error [Unknown]

NARRATIVE: CASE EVENT DATE: 20220704
